FAERS Safety Report 18544255 (Version 1)
Quarter: 2020Q4

REPORT INFORMATION
  Report Type: Report from Study
  Country: None (occurrence: AR)
  Receive Date: 20201125
  Receipt Date: 20201125
  Transmission Date: 20210114
  Serious: Yes (Other)
  Sender: FDA-Public Use
  Company Number: AR-ABBVIE-17K-007-1999411-00

PATIENT
  Age: 49 Year
  Sex: Male

DRUGS (1)
  1. HUMIRA [Suspect]
     Active Substance: ADALIMUMAB
     Indication: RHEUMATOID ARTHRITIS
     Route: 058
     Dates: start: 20141223

REACTIONS (4)
  - Musculoskeletal disorder [Unknown]
  - Finger deformity [Not Recovered/Not Resolved]
  - Humerus fracture [Recovering/Resolving]
  - Grip strength decreased [Unknown]

NARRATIVE: CASE EVENT DATE: 2017
